FAERS Safety Report 20393023 (Version 1)
Quarter: 2022Q1

REPORT INFORMATION
  Report Type: Spontaneous
  Country: SG (occurrence: SG)
  Receive Date: 20220128
  Receipt Date: 20220128
  Transmission Date: 20220424
  Serious: Yes (Death, Other)
  Sender: FDA-Public Use
  Company Number: SG-TAKEDA-2022TUS005871

PATIENT
  Age: 69 Year
  Sex: Male

DRUGS (2)
  1. ENTYVIO [Suspect]
     Active Substance: VEDOLIZUMAB
     Indication: Colitis ulcerative
     Dosage: UNK
     Route: 065
     Dates: start: 202009
  2. TENOFOVIR [Concomitant]
     Active Substance: TENOFOVIR
     Dosage: UNK

REACTIONS (4)
  - Death [Fatal]
  - Rash [Unknown]
  - Urticaria [Unknown]
  - Hypotension [Unknown]

NARRATIVE: CASE EVENT DATE: 20201203
